FAERS Safety Report 16343419 (Version 2)
Quarter: 2020Q3

REPORT INFORMATION
  Report Type: Report from Study
  Country: US (occurrence: US)
  Receive Date: 20190522
  Receipt Date: 20200907
  Transmission Date: 20201102
  Serious: Yes (Other)
  Sender: FDA-Public Use
  Company Number: US-TAKEDA-2019TUS030675

PATIENT
  Age: 60 Year
  Sex: Male
  Weight: 80 kg

DRUGS (9)
  1. VEDOLIZUMAB [Suspect]
     Active Substance: VEDOLIZUMAB
     Indication: COLITIS ULCERATIVE
     Dosage: 300 MILLIGRAM
     Route: 042
     Dates: start: 201802
  2. LORAZEPAM. [Concomitant]
     Active Substance: LORAZEPAM
     Indication: ANXIETY
     Dosage: 1 MILLIGRAM, QD
  3. ROSUVASTATIN. [Concomitant]
     Active Substance: ROSUVASTATIN
     Indication: BLOOD CHOLESTEROL
     Dosage: 5 MILLIGRAM, QD
  4. VALSARTAN. [Concomitant]
     Active Substance: VALSARTAN
     Indication: HYPERTENSION
     Dosage: 20 MILLIGRAM
  5. PRASUGREL. [Concomitant]
     Active Substance: PRASUGREL
     Indication: CARDIAC DISORDER
     Dosage: 10 MILLIGRAM, QD
  6. CITALOPRAM [Concomitant]
     Active Substance: CITALOPRAM HYDROBROMIDE
     Indication: DEPRESSION
     Dosage: 30 MILLIGRAM, QD
  7. EZETIMIBE. [Concomitant]
     Active Substance: EZETIMIBE
     Indication: BLOOD CHOLESTEROL
     Dosage: 10 MILLIGRAM, QD
  8. VEDOLIZUMAB [Suspect]
     Active Substance: VEDOLIZUMAB
     Indication: CROHN^S DISEASE
     Dosage: 300 MILLIGRAM, Q4WEEKS
     Route: 042
  9. VASCEPA [Concomitant]
     Active Substance: ICOSAPENT ETHYL
     Indication: SUPPLEMENTATION THERAPY
     Dosage: 4 GRAM, QD

REACTIONS (6)
  - Sinusitis [Recovered/Resolved]
  - Stent placement [Unknown]
  - Therapeutic reaction time decreased [Unknown]
  - Colitis ulcerative [Not Recovered/Not Resolved]
  - Influenza [Recovered/Resolved]
  - Off label use [Unknown]

NARRATIVE: CASE EVENT DATE: 201901
